FAERS Safety Report 20318307 (Version 1)
Quarter: 2022Q1

REPORT INFORMATION
  Report Type: Spontaneous
  Country: US (occurrence: US)
  Receive Date: 20220110
  Receipt Date: 20220110
  Transmission Date: 20220424
  Serious: No
  Sender: FDA-Public Use
  Company Number: US-JNJFOC-20220105015

PATIENT
  Sex: Female

DRUGS (1)
  1. UPTRAVI [Suspect]
     Active Substance: SELEXIPAG
     Indication: Product used for unknown indication
     Route: 048

REACTIONS (6)
  - Weight increased [Unknown]
  - Expired product administered [Unknown]
  - Peripheral swelling [Unknown]
  - Blister [Unknown]
  - Diarrhoea [Unknown]
  - Dry skin [Unknown]

NARRATIVE: CASE EVENT DATE: 20211201
